FAERS Safety Report 6761903-6 (Version None)
Quarter: 2010Q2

REPORT INFORMATION
  Report Type: 
  Country: None (occurrence: None)
  Receive Date: 20100609
  Receipt Date: 20100526
  Transmission Date: 20101027
  Serious: Yes (Hospitalization, Other)
  Sender: FDA-Public Use
  Company Number: PHHY2009GB14703

PATIENT
  Sex: Male

DRUGS (1)
  1. CLOZARIL [Suspect]
     Indication: SCHIZOPHRENIA
     Dosage: UNK
     Route: 048
     Dates: start: 20070606, end: 20100528

REACTIONS (5)
  - ABDOMINAL NEOPLASM [None]
  - CARDIAC DISORDER [None]
  - HEART VALVE REPLACEMENT [None]
  - OEDEMA PERIPHERAL [None]
  - PLATELET COUNT DECREASED [None]
